FAERS Safety Report 9098877 (Version 1)
Quarter: 2013Q1

REPORT INFORMATION
  Report Type: Spontaneous
  Country: GB (occurrence: GB)
  Receive Date: 20130213
  Receipt Date: 20130213
  Transmission Date: 20140127
  Serious: Yes (Other)
  Sender: FDA-Public Use
  Company Number: PHHY2013GB013190

PATIENT
  Sex: Male

DRUGS (2)
  1. OLANZAPINE [Suspect]
     Dates: start: 2002
  2. OLANZAPINE [Suspect]
     Dosage: 10 MG, UNK
     Dates: start: 2007

REACTIONS (2)
  - Optic ischaemic neuropathy [Unknown]
  - Vision blurred [Unknown]
